FAERS Safety Report 16046996 (Version 2)
Quarter: 2019Q1

REPORT INFORMATION
  Report Type: Spontaneous
  Country: US (occurrence: US)
  Receive Date: 20190307
  Receipt Date: 20190311
  Transmission Date: 20190418
  Serious: Yes (Other)
  Sender: FDA-Public Use
  Company Number: US-009507513-1903USA000973

PATIENT
  Sex: Female

DRUGS (1)
  1. FOSAMAX [Suspect]
     Active Substance: ALENDRONATE SODIUM
     Route: 048

REACTIONS (5)
  - Exostosis [Unknown]
  - Tooth loss [Unknown]
  - Hip fracture [Unknown]
  - Pelvic fracture [Unknown]
  - Bone density abnormal [Unknown]
